FAERS Safety Report 11343992 (Version 1)
Quarter: 2015Q3

REPORT INFORMATION
  Report Type: Spontaneous
  Country: US (occurrence: US)
  Receive Date: 20150806
  Receipt Date: 20150806
  Transmission Date: 20151125
  Serious: Yes (Hospitalization)
  Sender: FDA-Public Use
  Company Number: US-JNJFOC-20150723003

PATIENT
  Age: 66 Year
  Sex: Female
  Weight: 107.5 kg

DRUGS (1)
  1. INVOKANA [Suspect]
     Active Substance: CANAGLIFLOZIN
     Indication: TYPE 2 DIABETES MELLITUS
     Route: 048
     Dates: start: 201506, end: 201507

REACTIONS (6)
  - Malaise [Unknown]
  - Drug dose omission [Not Recovered/Not Resolved]
  - Aggression [Unknown]
  - Cognitive disorder [Unknown]
  - Nightmare [Unknown]
  - Adverse event [Unknown]

NARRATIVE: CASE EVENT DATE: 201507
